FAERS Safety Report 15800521 (Version 1)
Quarter: 2019Q1

REPORT INFORMATION
  Report Type: Spontaneous
  Country: US (occurrence: US)
  Receive Date: 20190108
  Receipt Date: 20190108
  Transmission Date: 20190417
  Serious: Yes (Life-Threatening, Other)
  Sender: FDA-Public Use
  Company Number: US-IMPAX LABORATORIES, LLC-2018-IPXL-04470

PATIENT
  Age: 23 Year
  Sex: Female

DRUGS (1)
  1. ADRENACLICK [Suspect]
     Active Substance: EPINEPHRINE
     Indication: ANAPHYLACTIC REACTION
     Dosage: 1 MILLIGRAM, IV PUSH  (2 DOSES)
     Route: 042

REACTIONS (4)
  - Cardiomyopathy [Recovered/Resolved]
  - Prescribed overdose [Unknown]
  - Cardiogenic shock [Recovered/Resolved]
  - Left ventricular dysfunction [Recovered/Resolved]
